FAERS Safety Report 5093004-X (Version None)
Quarter: 2006Q3

REPORT INFORMATION
  Report Type: 
  Country: None (occurrence: None)
  Receive Date: 20060830
  Receipt Date: 20060816
  Transmission Date: 20061208
  Serious: Yes (Other)
  Sender: FDA-Public Use
  Company Number: DE-GLAXOSMITHKLINE-D0050630B

PATIENT
  Sex: Male
  Weight: 0.7 kg

DRUGS (5)
  1. EPIVIR [Suspect]
  2. RETROVIR [Suspect]
     Dates: start: 20060425, end: 20060425
  3. ZERIT [Suspect]
     Route: 065
  4. VIRAMUNE [Suspect]
     Route: 065
  5. FOLATE [Concomitant]
     Route: 065

REACTIONS (3)
  - CONGENITAL CYTOMEGALOVIRUS INFECTION [None]
  - DEAFNESS UNILATERAL [None]
  - PREMATURE LABOUR [None]
